FAERS Safety Report 6886560 (Version 2)
Quarter: 2020Q3

REPORT INFORMATION
  Report Type: Report from Study
  Country: US (occurrence: US)
  Receive Date: 20090120
  Receipt Date: 20090224
  Transmission Date: 20201104
  Serious: Yes (Death)
  Sender: FDA-Public Use
  Company Number: US-ROCHE-607260

PATIENT
  Age: 63 Year
  Sex: Female
  Weight: 68.6 kg

DRUGS (1)
  1. IBANDRONIC ACID. [Suspect]
     Active Substance: IBANDRONIC ACID
     Dosage: TOTAL DOSE ADMINISTERED: 9900 MG, LAST DOSE: 25 DEC 2008.
     Route: 048
     Dates: start: 20080611, end: 20081225

REACTIONS (7)
  - Acute kidney injury [Fatal]
  - Pulmonary hypertension [Fatal]
  - Bronchial hyperreactivity [Fatal]
  - Left ventricular dysfunction [Fatal]
  - Respiratory failure [Fatal]
  - Pneumonia [Fatal]
  - Cardiomyopathy [Fatal]

NARRATIVE: CASE EVENT DATE: 20081222
